FAERS Safety Report 8993220 (Version 1)
Quarter: 2013Q1

REPORT INFORMATION
  Report Type: Spontaneous
  Country: US (occurrence: US)
  Receive Date: 20130102
  Receipt Date: 20130102
  Transmission Date: 20140127
  Serious: Yes (Other)
  Sender: FDA-Public Use
  Company Number: US-BAYER-2012-134480

PATIENT
  Age: 52 Year
  Sex: Male
  Weight: 72.56 kg

DRUGS (4)
  1. BRONKAID [Suspect]
     Dosage: 1 DF, QID
     Route: 048
     Dates: start: 1997
  2. ALBUTEROL [Concomitant]
  3. ADVAIR [Concomitant]
  4. SYMBICORT [Concomitant]

REACTIONS (3)
  - Silicosis [None]
  - Incorrect drug administration duration [None]
  - Unevaluable event [None]
